FAERS Safety Report 7777077-9 (Version None)
Quarter: 2011Q3

REPORT INFORMATION
  Report Type: 
  Country: None (occurrence: None)
  Receive Date: 20110926
  Receipt Date: 20110919
  Transmission Date: 20111222
  Serious: Yes (Hospitalization)
  Sender: FDA-Public Use
  Company Number: US-UCBSA-040969

PATIENT
  Sex: Female

DRUGS (5)
  1. RAPAMUNE [Suspect]
     Indication: RHEUMATOID ARTHRITIS
     Route: 048
     Dates: start: 20100603, end: 20110428
  2. LASIX [Concomitant]
     Dates: end: 20110711
  3. CIMZIA [Suspect]
     Indication: RHEUMATOID ARTHRITIS
     Route: 058
     Dates: start: 20110309, end: 20110616
  4. LASIX [Concomitant]
     Dosage: DOSE INCREASED
     Dates: start: 20110712
  5. RAPAMUNE [Suspect]
     Route: 048
     Dates: start: 20110429, end: 20110628

REACTIONS (3)
  - CARDIAC FAILURE [None]
  - ACUTE PULMONARY OEDEMA [None]
  - URINARY TRACT INFECTION [None]
